FAERS Safety Report 4545707-0 (Version None)
Quarter: 2005Q1

REPORT INFORMATION
  Report Type: 
  Country: None (occurrence: None)
  Receive Date: 20050103
  Receipt Date: 20050103
  Transmission Date: 20050727
  Serious: Yes (Life-Threatening, Other)
  Sender: FDA-Public Use
  Company Number: None

PATIENT
  Sex: Female
  Weight: 65.9 kg

DRUGS (2)
  1. CARBAMAZEPINE [Suspect]
     Indication: BIPOLAR DISORDER
     Dosage: 200 MG BID; 500 MG TID PO
     Route: 048
     Dates: start: 20030623, end: 20030701
  2. OLANZAPINE [Suspect]
     Indication: BIPOLAR DISORDER
     Dosage: 15 MG QD PO
     Route: 048
     Dates: start: 20030624, end: 20030630

REACTIONS (2)
  - LEUKOPENIA [None]
  - NEUTROPENIA [None]
